FAERS Safety Report 5894179-2 (Version None)
Quarter: 2008Q3

REPORT INFORMATION
  Report Type: 
  Country: None (occurrence: None)
  Receive Date: 20080923
  Receipt Date: 20080922
  Transmission Date: 20090109
  Serious: Yes (Death)
  Sender: FDA-Public Use
  Company Number: ES-GENENTECH-267998

PATIENT
  Age: 68 Year
  Sex: Female

DRUGS (7)
  1. MABTHERA [Suspect]
     Indication: B-CELL LYMPHOMA
  2. CYCLOPHOSPHAMIDE [Suspect]
     Indication: PRIMARY MEDIASTINAL LARGE B-CELL LYMPHOMA
     Route: 065
  3. ONCOVIN [Suspect]
     Indication: PRIMARY MEDIASTINAL LARGE B-CELL LYMPHOMA
     Route: 065
  4. DOXORUBICIN HCL [Suspect]
     Indication: B-CELL LYMPHOMA
     Route: 065
  5. PREDNISONE [Suspect]
     Indication: PRIMARY MEDIASTINAL LARGE B-CELL LYMPHOMA
     Route: 065
  6. DOCETAXEL [Concomitant]
     Indication: PRIMARY MEDIASTINAL LARGE B-CELL LYMPHOMA
  7. LAMIVUDINE [Concomitant]
     Indication: DRUG USE FOR UNKNOWN INDICATION
     Dosage: 100 MG, QD
     Route: 048

REACTIONS (2)
  - HEPATITIS B [None]
  - MULTI-ORGAN FAILURE [None]
